FAERS Safety Report 14004670 (Version 1)
Quarter: 2017Q3

REPORT INFORMATION
  Report Type: Spontaneous
  Country: TR (occurrence: TR)
  Receive Date: 20170922
  Receipt Date: 20170922
  Transmission Date: 20171128
  Serious: Yes (Other)
  Sender: FDA-Public Use
  Company Number: TR-ROCHE-1995702

PATIENT
  Age: 9 Year
  Sex: Female

DRUGS (2)
  1. VALGANCICLOVIR HYDROCHLORIDE. [Suspect]
     Active Substance: VALGANCICLOVIR HYDROCHLORIDE
     Indication: PNEUMONIA CYTOMEGALOVIRAL
     Route: 065
  2. GANCICLOVIR SODIUM. [Suspect]
     Active Substance: GANCICLOVIR SODIUM
     Indication: PNEUMONIA CYTOMEGALOVIRAL
     Route: 065

REACTIONS (2)
  - Anaphylactic reaction [Unknown]
  - Drug ineffective [Unknown]
